FAERS Safety Report 11807367 (Version 2)
Quarter: 2015Q4

REPORT INFORMATION
  Report Type: Spontaneous
  Country: US (occurrence: US)
  Receive Date: 20151207
  Receipt Date: 20151230
  Transmission Date: 20160305
  Serious: No
  Sender: FDA-Public Use
  Company Number: US-ASTRAZENECA-2015SF19667

PATIENT
  Age: 773 Month
  Weight: 69.9 kg

DRUGS (5)
  1. DESICCATED THYROID [Concomitant]
     Indication: THYROID DISORDER
  2. ADVAIR HFA [Suspect]
     Active Substance: FLUTICASONE PROPIONATE\SALMETEROL XINAFOATE
     Route: 065
  3. SPIRIVA [Concomitant]
     Active Substance: TIOTROPIUM BROMIDE MONOHYDRATE
     Indication: CHRONIC OBSTRUCTIVE PULMONARY DISEASE
  4. PULMICORT FLEXHALER [Suspect]
     Active Substance: BUDESONIDE
     Indication: CHRONIC OBSTRUCTIVE PULMONARY DISEASE
     Dosage: 180 MCG, 2 PUFFS A DAY
     Route: 055
     Dates: start: 201402
  5. SYNTHROID [Concomitant]
     Active Substance: LEVOTHYROXINE SODIUM

REACTIONS (14)
  - Wheezing [Unknown]
  - Myalgia [Unknown]
  - Intentional product misuse [Unknown]
  - Lung disorder [Unknown]
  - Weight increased [Unknown]
  - Throat irritation [Unknown]
  - Bronchial disorder [Unknown]
  - Candida infection [Unknown]
  - Cerebral disorder [Unknown]
  - Dyspnoea [Unknown]
  - Weight decreased [Unknown]
  - Feeling abnormal [Unknown]
  - Dysphonia [Unknown]
  - Product quality issue [Unknown]

NARRATIVE: CASE EVENT DATE: 201509
